FAERS Safety Report 19683805 (Version 2)
Quarter: 2021Q3

REPORT INFORMATION
  Report Type: Spontaneous
  Country: US (occurrence: US)
  Receive Date: 20210811
  Receipt Date: 20210828
  Transmission Date: 20211014
  Serious: Yes (Hospitalization, Other)
  Sender: FDA-Public Use
  Company Number: US-AMGEN-USASP2021122317

PATIENT
  Age: 83 Year
  Sex: Male

DRUGS (4)
  1. CARFILZOMIB [Suspect]
     Active Substance: CARFILZOMIB
     Dosage: 56 MILLIGRAM (DAYS 8, 9, 15, AND 16, CYCLE 1)
     Route: 042
     Dates: start: 202106
  2. CARFILZOMIB [Suspect]
     Active Substance: CARFILZOMIB
     Indication: PLASMA CELL MYELOMA
     Dosage: 20 MILLIGRAM (DAYS 1 AND 2)
     Route: 042
     Dates: start: 20210525
  3. CARFILZOMIB [Suspect]
     Active Substance: CARFILZOMIB
     Dosage: 56 MILLIGRAM (DAYS 1, 2, 8, 9, 15, AND 16, CYCLE 2)
     Route: 042
     Dates: start: 2021, end: 20210720
  4. DEXAMETHASONE. [Suspect]
     Active Substance: DEXAMETHASONE
     Indication: PLASMA CELL MYELOMA
     Dosage: 20 MILLIGRAM (L, 2, 8, 9, 15, 16, 22 AND 23))
     Route: 048
     Dates: start: 20210524, end: 20210720

REACTIONS (3)
  - Plasma cell myeloma [Unknown]
  - Pneumonia [Not Recovered/Not Resolved]
  - Pulmonary hypertension [Recovered/Resolved]

NARRATIVE: CASE EVENT DATE: 20210721
